FAERS Safety Report 4267649-0 (Version None)
Quarter: 2004Q1

REPORT INFORMATION
  Report Type: 
  Country: None (occurrence: None)
  Receive Date: 20040109
  Receipt Date: 20031113
  Transmission Date: 20041129
  Serious: No
  Sender: FDA-Public Use
  Company Number: US-GLAXOSMITHKLINE-A0439815A

PATIENT
  Sex: Female

DRUGS (1)
  1. WELLBUTRIN [Suspect]

REACTIONS (2)
  - HOARSENESS [None]
  - HYPERTRICHOSIS [None]
